FAERS Safety Report 9628375 (Version 1)
Quarter: 2013Q4

REPORT INFORMATION
  Report Type: Spontaneous
  Country: US (occurrence: US)
  Receive Date: 20131017
  Receipt Date: 20131017
  Transmission Date: 20140711
  Serious: No
  Sender: FDA-Public Use
  Company Number: US-009507513-1310USA007544

PATIENT
  Sex: Male

DRUGS (1)
  1. SAPHRIS [Suspect]
     Dosage: 5 MILLIGRAM
     Route: 060

REACTIONS (2)
  - Dizziness [Unknown]
  - Heart rate increased [Unknown]
